FAERS Safety Report 5851091-2 (Version None)
Quarter: 2008Q3

REPORT INFORMATION
  Report Type: 
  Country: None (occurrence: None)
  Receive Date: 20080820
  Receipt Date: 20080813
  Transmission Date: 20090109
  Serious: Yes (Hospitalization)
  Sender: FDA-Public Use
  Company Number: US-WATSON-2008-04895

PATIENT
  Age: 86 Year
  Sex: Male

DRUGS (22)
  1. ALBUTEROL SULFATE + IPRATROPIUM BROMIDE (WATSON LABORATORIES) [Suspect]
     Indication: CHRONIC OBSTRUCTIVE PULMONARY DISEASE
     Dosage: PRN
     Route: 065
  2. FAMOTIDINE [Suspect]
     Indication: DRUG USE FOR UNKNOWN INDICATION
     Dosage: 40 MG, DAILY
     Route: 065
  3. FUROSEMIDE (WATSON LABORATORIES) [Suspect]
     Indication: DRUG USE FOR UNKNOWN INDICATION
     Dosage: 20 MG, 3/WEEK
     Route: 065
  4. ISOSORBIDE (WATSON LABORATORIES) [Suspect]
     Indication: ANGINA PECTORIS
     Dosage: 15 MG, DAILY
     Route: 065
  5. METOCLOPRAMIDE INJECTION [Suspect]
     Indication: DRUG USE FOR UNKNOWN INDICATION
     Dosage: 10 MG, QID
     Route: 065
  6. SERTRALINE HYDROCHLORIDE [Suspect]
     Indication: DRUG USE FOR UNKNOWN INDICATION
     Dosage: 75 MG, DAILY
     Route: 065
  7. DENEZEPIL [Suspect]
     Indication: DRUG USE FOR UNKNOWN INDICATION
     Dosage: 10 MG UNKNOWN
     Route: 065
  8. CYPROHEPTADINE HCL [Suspect]
     Indication: DRUG USE FOR UNKNOWN INDICATION
     Dosage: 4 MG, DAILY
     Route: 065
  9. FLUNISOLIDE [Suspect]
     Indication: DRUG USE FOR UNKNOWN INDICATION
     Dosage: UNK
     Route: 065
  10. INSULIN ASPART [Suspect]
     Indication: DRUG USE FOR UNKNOWN INDICATION
     Dosage: SLIDING SCALE
     Route: 065
  11. INSULIN INSULATARD NPH NORDISK [Suspect]
     Indication: DRUG USE FOR UNKNOWN INDICATION
     Dosage: 15 UNITS, QAM
     Route: 065
  12. MOMETASONE FUROATE [Suspect]
     Indication: DRUG USE FOR UNKNOWN INDICATION
     Dosage: UNK
     Route: 055
  13. LEVETIRACETAM [Suspect]
     Indication: CONVULSION
     Dosage: 1000 MG, BID
     Route: 065
  14. MAGNESIUM GLUCONATE [Suspect]
     Indication: DRUG USE FOR UNKNOWN INDICATION
     Dosage: 100 MG, DAILY
     Route: 065
  15. MODAFINIL [Suspect]
     Indication: APATHY
     Dosage: 200 MG UNK
     Route: 065
  16. MODAFINIL [Suspect]
     Indication: FATIGUE
  17. NITROGLYCERIN [Suspect]
     Indication: DRUG USE FOR UNKNOWN INDICATION
     Dosage: 0.4 MG, PRN
     Route: 065
  18. SIMVASTATIN [Suspect]
     Indication: DRUG USE FOR UNKNOWN INDICATION
     Dosage: 40 MG, QHS
     Route: 065
  19. ASPIRIN [Concomitant]
     Indication: DRUG USE FOR UNKNOWN INDICATION
     Dosage: UNK
     Route: 065
  20. LISINOPRIL [Concomitant]
     Indication: DRUG USE FOR UNKNOWN INDICATION
     Dosage: 2.5 MG, DAILY
     Route: 065
  21. METOPROLOL TARTRATE [Concomitant]
     Indication: DRUG USE FOR UNKNOWN INDICATION
     Dosage: 75 MG, DAILY
     Route: 065
  22. CLOPIDOGREL [Concomitant]
     Indication: DRUG USE FOR UNKNOWN INDICATION
     Dosage: UNK
     Route: 065

REACTIONS (5)
  - ANOREXIA [None]
  - CONDITION AGGRAVATED [None]
  - DEHYDRATION [None]
  - IMPAIRED GASTRIC EMPTYING [None]
  - NAUSEA [None]
